FAERS Safety Report 10661568 (Version 1)
Quarter: 2014Q4

REPORT INFORMATION
  Report Type: Spontaneous
  Country: US (occurrence: None)
  Receive Date: 20141217
  Receipt Date: 20141217
  Transmission Date: 20150529
  Serious: Yes (Hospitalization)
  Sender: FDA-Public Use
  Company Number: None

PATIENT
  Age: 51 Year
  Sex: Male
  Weight: 94.8 kg

DRUGS (3)
  1. DECADRON [Concomitant]
     Active Substance: DEXAMETHASONE
  2. VANCOMYCIN [Concomitant]
     Active Substance: VANCOMYCIN
  3. BEVACIZUMAB (RHUMAB VEGF) [Suspect]
     Active Substance: BEVACIZUMAB
     Dosage: SUBJECT RANDOMIZED TO STANDARD OF CARE AND ONLY RECEIVED DAY 1 DOSE OF BEVACIZUMAB THEN WITHDREW FROM STUDYAFTER INFUSION.
     Dates: end: 20141024

REACTIONS (6)
  - Respiratory failure [None]
  - Postoperative wound infection [None]
  - Clostridium difficile infection [None]
  - Septic shock [None]
  - Pneumonia [None]
  - Deep vein thrombosis [None]

NARRATIVE: CASE EVENT DATE: 20141030
